FAERS Safety Report 5720847-9 (Version None)
Quarter: 2008Q2

REPORT INFORMATION
  Report Type: 
  Country: None (occurrence: None)
  Receive Date: 20080429
  Receipt Date: 20070319
  Transmission Date: 20081010
  Serious: Yes (Hospitalization)
  Sender: FDA-Public Use
  Company Number: A0643722A

PATIENT
  Age: 63 Year
  Sex: Female

DRUGS (7)
  1. SEREVENT [Suspect]
     Indication: ASTHMA
     Route: 055
  2. ADVAIR HFA [Suspect]
     Indication: ASTHMA
     Dosage: 1PUFF TWICE PER DAY
     Route: 055
     Dates: start: 20070226
  3. SINGULAIR [Concomitant]
  4. ZYRTEC [Concomitant]
  5. PROTONIX [Concomitant]
  6. PREDNISONE [Concomitant]
  7. FLOMAX [Concomitant]

REACTIONS (4)
  - ADVERSE EVENT [None]
  - MIDDLE INSOMNIA [None]
  - PRURITUS [None]
  - RASH [None]
